FAERS Safety Report 5096844-6 (Version None)
Quarter: 2006Q3

REPORT INFORMATION
  Report Type: 
  Country: None (occurrence: None)
  Receive Date: 20060901
  Receipt Date: 20060901
  Transmission Date: 20061208
  Serious: Yes (Hospitalization)
  Sender: FDA-Public Use
  Company Number: None

PATIENT
  Age: 40 Year
  Sex: Male
  Weight: 81 kg

DRUGS (5)
  1. CLOZAPINE [Suspect]
     Indication: SCHIZOPHRENIA
     Dosage: 200 MG PO TID
     Route: 048
     Dates: start: 20050713
  2. SERTRALINE [Concomitant]
  3. DIVALPROEX XR [Concomitant]
  4. GABAPENTIN [Concomitant]
  5. TRAZODONE HCL [Concomitant]

REACTIONS (2)
  - GRAND MAL CONVULSION [None]
  - POSTICTAL STATE [None]
